FAERS Safety Report 4759503-2 (Version None)
Quarter: 2005Q3

REPORT INFORMATION
  Report Type: 
  Country: None (occurrence: None)
  Receive Date: 20050831
  Receipt Date: 20050815
  Transmission Date: 20060218
  Serious: Yes (Hospitalization, Disabling)
  Sender: FDA-Public Use
  Company Number: 393478

PATIENT
  Age: 16 Year
  Sex: Female
  Weight: 58.1 kg

DRUGS (2)
  1. ACCUTANE [Suspect]
     Indication: ACNE
     Dosage: 40 MG DAILY ORAL
     Route: 048
     Dates: start: 19991006, end: 20000228
  2. ORTHO TRI-CYCLEN [Concomitant]

REACTIONS (46)
  - ABDOMINAL TENDERNESS [None]
  - ACNE [None]
  - ANAEMIA [None]
  - ANHEDONIA [None]
  - ANOVULATORY CYCLE [None]
  - ANXIETY [None]
  - BACK PAIN [None]
  - BLOOD CREATINE PHOSPHOKINASE INCREASED [None]
  - CHEST PAIN [None]
  - CONDITION AGGRAVATED [None]
  - COSTOCHONDRITIS [None]
  - CROHN'S DISEASE [None]
  - CYST [None]
  - DEPRESSION [None]
  - DYSPEPSIA [None]
  - ECONOMIC PROBLEM [None]
  - FEELING GUILTY [None]
  - FLANK PAIN [None]
  - GASTROINTESTINAL DISORDER [None]
  - HAEMATURIA [None]
  - HERPES SIMPLEX [None]
  - ILEUS [None]
  - INFLAMMATION [None]
  - INFLAMMATORY BOWEL DISEASE [None]
  - INFLUENZA [None]
  - INJURY [None]
  - INSOMNIA [None]
  - INTESTINAL HAEMORRHAGE [None]
  - LACTOSE INTOLERANCE [None]
  - LARYNGEAL STENOSIS [None]
  - MAJOR DEPRESSION [None]
  - MENORRHAGIA [None]
  - MILK ALLERGY [None]
  - NASAL TURBINATE HYPERTROPHY [None]
  - NAUSEA [None]
  - OESOPHAGEAL STENOSIS [None]
  - OESOPHAGITIS [None]
  - PAINFUL DEFAECATION [None]
  - PALPITATIONS [None]
  - SCAR [None]
  - SMALL INTESTINAL OBSTRUCTION [None]
  - SMEAR CERVIX ABNORMAL [None]
  - VAGINAL DISCHARGE [None]
  - VISUAL ACUITY REDUCED [None]
  - VISUAL DISTURBANCE [None]
  - VULVAL ULCERATION [None]
